FAERS Safety Report 23777532 (Version 1)
Quarter: 2024Q2

REPORT INFORMATION
  Report Type: Spontaneous
  Country: US (occurrence: US)
  Receive Date: 20240424
  Receipt Date: 20240424
  Transmission Date: 20240716
  Serious: No
  Sender: FDA-Public Use
  Company Number: US-GILEAD-2024-0670514

PATIENT
  Sex: Male

DRUGS (1)
  1. CAYSTON [Suspect]
     Active Substance: AZTREONAM
     Indication: Chronic respiratory failure
     Dosage: 75 MG, TID (1 VIAL VIA PARI A 3 TIMES A DAY FOR 28 DAYS ON AND 28 DAYS OFF.)
     Route: 055
     Dates: start: 202201

REACTIONS (1)
  - Off label use [Not Recovered/Not Resolved]
